FAERS Safety Report 7389592-0 (Version None)
Quarter: 2011Q2

REPORT INFORMATION
  Report Type: 
  Country: None (occurrence: None)
  Receive Date: 20110401
  Receipt Date: 20110328
  Transmission Date: 20111010
  Serious: Yes (Hospitalization)
  Sender: FDA-Public Use
  Company Number: JP-KINGPHARMUSA00001-K201100351

PATIENT
  Age: 73 Year
  Sex: Female

DRUGS (1)
  1. SEPTRA [Suspect]
     Indication: ORAL INFECTION
     Route: 048

REACTIONS (1)
  - INAPPROPRIATE ANTIDIURETIC HORMONE SECRETION [None]
